FAERS Safety Report 9960175 (Version 2)
Quarter: 2014Q1

REPORT INFORMATION
  Report Type: Report from Study
  Country: US (occurrence: US)
  Receive Date: 20140305
  Receipt Date: 20140305
  Transmission Date: 20141002
  Serious: No
  Sender: FDA-Public Use
  Company Number: US-ABBVIE-12P-163-1020553-00

PATIENT
  Age: 55 Year
  Sex: Male

DRUGS (20)
  1. HUMIRA [Suspect]
     Indication: RHEUMATOID ARTHRITIS
     Dates: start: 201111
  2. METHOTREXATE [Suspect]
     Indication: PRODUCT USED FOR UNKNOWN INDICATION
     Dosage: 5 PILLS WEEKLY
     Dates: end: 201304
  3. METHOTREXATE [Suspect]
     Dates: start: 20130510
  4. AMLODIPINE [Concomitant]
     Indication: HYPERTENSION
  5. LISINOPRIL [Concomitant]
     Indication: HYPERTENSION
  6. TRAMADOL [Concomitant]
     Indication: PAIN
  7. AMBIEN [Concomitant]
     Indication: INSOMNIA
  8. CLONAZEPAM [Concomitant]
     Indication: ANXIETY
  9. PRILOSEC [Concomitant]
     Indication: DYSPEPSIA
  10. BABY ASPIRIN [Concomitant]
     Indication: ANTICOAGULANT THERAPY
  11. COQ10 [Concomitant]
     Indication: PRODUCT USED FOR UNKNOWN INDICATION
  12. CHROMIUM PICOLINATE [Concomitant]
     Indication: PRODUCT USED FOR UNKNOWN INDICATION
  13. VITAMIN D NOS [Concomitant]
     Indication: PRODUCT USED FOR UNKNOWN INDICATION
  14. WELLBUTRIN [Concomitant]
     Indication: DEPRESSION
  15. WELLBUTRIN [Concomitant]
     Indication: ANXIETY
  16. VOLTAREN [Concomitant]
     Indication: JOINT SWELLING
     Dosage: ONLY USES PERIODICALLY BECAUSE IT IS EXPENSIVE
  17. DOXAZOSIN [Concomitant]
     Indication: BLOOD PRESSURE
     Dosage: EVERY NIGHT
  18. CELEBREX [Concomitant]
     Indication: PRODUCT USED FOR UNKNOWN INDICATION
  19. FLONASE [Concomitant]
     Indication: PRODUCT USED FOR UNKNOWN INDICATION
     Dates: start: 201303
  20. ALLEREZE [Concomitant]
     Indication: PRODUCT USED FOR UNKNOWN INDICATION
     Dates: start: 201303

REACTIONS (10)
  - Dizziness [Recovered/Resolved]
  - Gingivitis [Not Recovered/Not Resolved]
  - Nausea [Recovered/Resolved]
  - Retching [Recovered/Resolved]
  - Injection site pain [Recovered/Resolved]
  - Sinusitis [Recovered/Resolved]
  - Gingivitis [Recovered/Resolved]
  - Injection site haemorrhage [Not Recovered/Not Resolved]
  - Blood testosterone decreased [Not Recovered/Not Resolved]
  - Rheumatoid arthritis [Not Recovered/Not Resolved]
